FAERS Safety Report 25496739 (Version 1)
Quarter: 2025Q3

REPORT INFORMATION
  Report Type: Report from Study
  Country: PR (occurrence: PR)
  Receive Date: 20250701
  Receipt Date: 20250701
  Transmission Date: 20251020
  Serious: No
  Sender: MALLINCKRODT
  Company Number: PR-MALLINCKRODT-MNK202503448

PATIENT
  Age: 52 Year
  Sex: Female

DRUGS (1)
  1. CORTICOTROPIN [Suspect]
     Active Substance: CORTICOTROPIN
     Indication: Sarcoidosis

REACTIONS (11)
  - Dry skin [Unknown]
  - Mass [Unknown]
  - Pain [Unknown]
  - Skin discolouration [Unknown]
  - Alopecia [Unknown]
  - Skin burning sensation [Unknown]
  - Asthenia [Unknown]
  - Skin exfoliation [Unknown]
  - Feeling abnormal [Unknown]
  - Injection site bruising [Unknown]
  - Injection site pain [Unknown]

NARRATIVE: CASE EVENT DATE: 20250501
